FAERS Safety Report 7756414-5 (Version None)
Quarter: 2011Q3

REPORT INFORMATION
  Report Type: 
  Country: None (occurrence: None)
  Receive Date: 20110916
  Receipt Date: 20110906
  Transmission Date: 20111222
  Serious: Yes (Hospitalization)
  Sender: FDA-Public Use
  Company Number: RU-SANOFI-AVENTIS-2011SA044160

PATIENT
  Age: 74 Year
  Sex: Male
  Weight: 116 kg

DRUGS (7)
  1. BISOPROLOL FUMARATE [Concomitant]
  2. INSULIN [Concomitant]
  3. WARFARIN SODIUM [Concomitant]
  4. QUINAPRIL HCL [Concomitant]
  5. ATORVASTATIN [Concomitant]
  6. DRONEDARONE HCL [Suspect]
     Indication: ATRIAL FIBRILLATION
     Route: 048
     Dates: start: 20110328
  7. THIAZIDES [Concomitant]

REACTIONS (1)
  - CARDIAC FAILURE [None]
